FAERS Safety Report 24632621 (Version 1)
Quarter: 2024Q4

REPORT INFORMATION
  Report Type: Spontaneous
  Country: US (occurrence: US)
  Receive Date: 20241118
  Receipt Date: 20241118
  Transmission Date: 20250115
  Serious: No
  Sender: DERMAVANT SCIENCES
  Company Number: US-Dermavant-001349

PATIENT
  Age: 78 Year
  Sex: Male

DRUGS (1)
  1. VTAMA [Suspect]
     Active Substance: TAPINAROF
     Indication: Psoriasis
     Route: 061
     Dates: start: 20241028, end: 20241029

REACTIONS (6)
  - Depression [Unknown]
  - Nervousness [Unknown]
  - Agitation [Unknown]
  - Confusional state [Unknown]
  - Decreased appetite [Unknown]
  - Thirst [Unknown]
